FAERS Safety Report 11982781 (Version 1)
Quarter: 2016Q1

REPORT INFORMATION
  Report Type: Spontaneous
  Country: US (occurrence: None)
  Receive Date: 20160129
  Receipt Date: 20160129
  Transmission Date: 20160526
  Serious: Yes (Life-Threatening)
  Sender: FDA-Public Use
  Company Number: None

PATIENT
  Age: 34 Year
  Sex: Male
  Weight: 61.24 kg

DRUGS (2)
  1. COBICISTAT [Suspect]
     Active Substance: COBICISTAT
     Indication: HIV INFECTION
     Dosage: 1 PILL, ONCE DAILY, TAKEN BY MOUTH
  2. IVERMECTIN. [Suspect]
     Active Substance: IVERMECTIN
     Indication: INFECTION PARASITIC
     Dosage: BY WEIGHT, ONCE DAILY, TAKEN BY MOUTH

REACTIONS (6)
  - Road traffic accident [None]
  - Loss of consciousness [None]
  - Drug interaction [None]
  - Memory impairment [None]
  - Hallucination, visual [None]
  - Abnormal behaviour [None]

NARRATIVE: CASE EVENT DATE: 20150129
